FAERS Safety Report 4457420-9 (Version None)
Quarter: 2004Q3

REPORT INFORMATION
  Report Type: 
  Country: None (occurrence: None)
  Receive Date: 20040922
  Receipt Date: 20040902
  Transmission Date: 20050211
  Serious: Yes (Other)
  Sender: FDA-Public Use
  Company Number: USA040977278

PATIENT
  Age: 44 Year
  Sex: Female
  Weight: 85 kg

DRUGS (5)
  1. HUMULIN N [Suspect]
     Dates: start: 19840101, end: 19860101
  2. LENTE ILETIN (BEEF-PORK) INSULIN ZINC [Suspect]
     Dates: start: 19860101
  3. SEMI-LENTE ILETIN INSULIN [Suspect]
     Dates: start: 19860101
  4. ULTRA-LENTE ILETIN INSULIN [Suspect]
     Dates: start: 19860101
  5. HUMALOG [Suspect]
     Dates: start: 19990101

REACTIONS (6)
  - FATIGUE [None]
  - HEPATITIS [None]
  - HYPOAESTHESIA [None]
  - MEDICATION ERROR [None]
  - ROAD TRAFFIC ACCIDENT [None]
  - WEIGHT INCREASED [None]
